FAERS Safety Report 18168561 (Version 2)
Quarter: 2020Q4

REPORT INFORMATION
  Report Type: Spontaneous
  Country: FR (occurrence: FR)
  Receive Date: 20200819
  Receipt Date: 20201003
  Transmission Date: 20210113
  Serious: Yes (Life-Threatening, Hospitalization, Other)
  Sender: FDA-Public Use
  Company Number: FR-MACLEODS PHARMACEUTICALS US LTD-MAC2020027710

PATIENT

DRUGS (2)
  1. RAMIPRIL. [Suspect]
     Active Substance: RAMIPRIL
     Indication: PRODUCT USED FOR UNKNOWN INDICATION
     Dosage: 200 MILLIGRAM, SINGLE, 1 TOTAL
     Route: 048
  2. AMLODIPINE [Suspect]
     Active Substance: AMLODIPINE BESYLATE
     Indication: PRODUCT USED FOR UNKNOWN INDICATION
     Dosage: 150 MILLIGRAM, SINGLE, 1 TOTAL
     Route: 048

REACTIONS (7)
  - Acute kidney injury [Recovered/Resolved]
  - Ventricular hyperkinesia [Recovered/Resolved]
  - Intentional overdose [Recovered/Resolved]
  - Vasoplegia syndrome [Recovered/Resolved]
  - Bundle branch block right [Recovered/Resolved]
  - Blood pressure decreased [Recovered/Resolved]
  - Toxicity to various agents [Recovered/Resolved]
